FAERS Safety Report 5635108-6 (Version None)
Quarter: 2008Q1

REPORT INFORMATION
  Report Type: 
  Country: None (occurrence: None)
  Receive Date: 20080222
  Receipt Date: 20071212
  Transmission Date: 20080703
  Serious: Yes (Other)
  Sender: FDA-Public Use
  Company Number: US-PFIZER INC-2007055413

PATIENT
  Sex: Female
  Weight: 104.5 kg

DRUGS (8)
  1. NORVASC [Suspect]
     Indication: HYPERTENSION
     Route: 048
     Dates: start: 19940101, end: 19980101
  2. NORVASC [Suspect]
     Dosage: DAILY DOSE:10MG-FREQ:QD
     Route: 048
     Dates: start: 19980101, end: 19980101
  3. NORVASC [Suspect]
     Dosage: DAILY DOSE:5MG-FREQ:QD
     Route: 048
  4. DICYCLOMINE [Concomitant]
  5. SENNA-GEN [Concomitant]
  6. MILK THISTLE [Concomitant]
  7. LOMOTIL [Concomitant]
  8. PROMETHAZINE [Concomitant]

REACTIONS (3)
  - HEPATITIS C [None]
  - OEDEMA PERIPHERAL [None]
  - PLEURAL EFFUSION [None]
